FAERS Safety Report 6519718-X (Version None)
Quarter: 2009Q4

REPORT INFORMATION
  Report Type: 
  Country: None (occurrence: None)
  Receive Date: 20091228
  Receipt Date: 20091216
  Transmission Date: 20100525
  Serious: Yes (Other)
  Sender: FDA-Public Use
  Company Number: US-PFIZER INC-2009290374

PATIENT
  Sex: Female
  Weight: 70.3 kg

DRUGS (3)
  1. DETROL LA [Suspect]
     Indication: HYPERTONIC BLADDER
     Dosage: 4 MG, 1X/DAY
     Dates: start: 20090101
  2. CALCIUM [Concomitant]
     Dosage: UNK
  3. FISH OIL [Concomitant]
     Dosage: UNK

REACTIONS (2)
  - CYSTITIS [None]
  - DRUG INEFFECTIVE [None]
